FAERS Safety Report 16530589 (Version 1)
Quarter: 2019Q3

REPORT INFORMATION
  Report Type: Spontaneous
  Country: NL (occurrence: NL)
  Receive Date: 20190704
  Receipt Date: 20190704
  Transmission Date: 20191004
  Serious: Yes (Hospitalization)
  Sender: FDA-Public Use
  Company Number: NL-TEVA-2019-NL-1072673

PATIENT
  Age: 52 Year
  Sex: Male
  Weight: 110 kg

DRUGS (2)
  1. CARVEDILOL TABLET, 50 MG (MILLIGRAM) [Suspect]
     Active Substance: CARVEDILOL
     Indication: HYPERTENSION
     Dosage: 2 X DAYS
     Dates: start: 20181002
  2. FUROSEMID [Concomitant]
     Active Substance: FUROSEMIDE
     Dosage: 80 MILLIGRAM DAILY; 1DD 80MG

REACTIONS (3)
  - Nausea [Recovered/Resolved]
  - Fatigue [Recovered/Resolved]
  - Cardiac arrest [Recovered/Resolved]

NARRATIVE: CASE EVENT DATE: 20181002
